FAERS Safety Report 10075646 (Version 2)
Quarter: 2014Q2

REPORT INFORMATION
  Report Type: Spontaneous
  Country: DE (occurrence: DE)
  Receive Date: 20140414
  Receipt Date: 20140618
  Transmission Date: 20141212
  Serious: Yes (Life-Threatening, Hospitalization)
  Sender: FDA-Public Use
  Company Number: DE-JNJFOC-20140407796

PATIENT
  Age: 82 Year
  Sex: Male
  Weight: 100 kg

DRUGS (12)
  1. XARELTO [Suspect]
     Indication: ATRIAL FIBRILLATION
     Route: 048
     Dates: start: 20120725, end: 201209
  2. XARELTO [Suspect]
     Indication: CEREBROVASCULAR ACCIDENT PROPHYLAXIS
     Route: 048
     Dates: start: 20120725, end: 201209
  3. METFORMIN [Suspect]
     Indication: PRODUCT USED FOR UNKNOWN INDICATION
     Route: 065
  4. METOPROLOL [Concomitant]
     Route: 065
  5. VALSARTAN [Concomitant]
     Route: 065
  6. ASS [Concomitant]
     Route: 065
     Dates: start: 201207, end: 201208
  7. CLOPIDOGREL [Concomitant]
     Route: 065
  8. LERCANIDIPINE [Concomitant]
     Route: 065
  9. TORASEMID [Concomitant]
     Route: 065
  10. ATORVASTATIN [Concomitant]
     Route: 065
  11. PANTOZOL [Concomitant]
     Route: 065
  12. NOVOMIX [Concomitant]
     Route: 065

REACTIONS (2)
  - Haemoglobin decreased [Recovered/Resolved]
  - Anaemia [Recovered/Resolved]
